FAERS Safety Report 15401613 (Version 1)
Quarter: 2018Q3

REPORT INFORMATION
  Report Type: Spontaneous
  Country: US (occurrence: US)
  Receive Date: 20180914
  Receipt Date: 20180914
  Transmission Date: 20181010
  Serious: Yes (Hospitalization)
  Sender: FDA-Public Use
  Company Number: None

PATIENT
  Age: 27 Year
  Sex: Female
  Weight: 49.5 kg

DRUGS (7)
  1. CLONAZEPAM. [Concomitant]
     Active Substance: CLONAZEPAM
  2. BEE POLLEN [Concomitant]
     Active Substance: BEE POLLEN
  3. METRONIDAZOLE. [Suspect]
     Active Substance: METRONIDAZOLE
     Indication: BACTERIAL VAGINOSIS
     Dosage: ?          QUANTITY:2 TABLET(S);?
     Route: 048
     Dates: start: 20180816, end: 20180821
  4. SPIRULINA [Concomitant]
     Active Substance: SPIRULINA
  5. TURMERIC [Concomitant]
     Active Substance: HERBALS\TURMERIC
  6. MAGNESIUM [Concomitant]
     Active Substance: MAGNESIUM
  7. B1 [Concomitant]

REACTIONS (6)
  - Palpitations [None]
  - Hypoaesthesia [None]
  - Panic attack [None]
  - Dizziness [None]
  - Mental status changes [None]
  - Poisoning [None]

NARRATIVE: CASE EVENT DATE: 20180819
